FAERS Safety Report 9844128 (Version 2)
Quarter: 2014Q1

REPORT INFORMATION
  Report Type: Spontaneous
  Country: US (occurrence: US)
  Receive Date: 20140127
  Receipt Date: 20140129
  Transmission Date: 20141002
  Serious: No
  Sender: FDA-Public Use
  Company Number: US-009507513-1401USA006768

PATIENT
  Sex: 0

DRUGS (1)
  1. DULERA [Suspect]
     Dosage: MUCH LESS FREQUENTLY THAN PRESCRIBED / AS NEEDED
     Route: 055
     Dates: start: 20130725

REACTIONS (4)
  - Underdose [Unknown]
  - Inappropriate schedule of drug administration [Unknown]
  - Product quality issue [Unknown]
  - No adverse event [Unknown]
